FAERS Safety Report 7339107-8 (Version None)
Quarter: 2011Q1

REPORT INFORMATION
  Report Type: 
  Country: None (occurrence: None)
  Receive Date: 20110308
  Receipt Date: 20110302
  Transmission Date: 20110831
  Serious: Yes (Hospitalization, Other)
  Sender: FDA-Public Use
  Company Number: ES-ABBOTT-11P-144-0708416-00

PATIENT
  Age: 42 Year
  Sex: Male

DRUGS (4)
  1. IMUREL [Concomitant]
     Indication: SPONDYLOARTHROPATHY
  2. IMUREL [Concomitant]
     Indication: CROHN'S DISEASE
  3. HUMIRA [Suspect]
     Indication: SPONDYLOARTHROPATHY
     Dates: start: 20091101
  4. HUMIRA [Suspect]
     Indication: CROHN'S DISEASE

REACTIONS (2)
  - SUBARACHNOID HAEMORRHAGE [None]
  - RENAL COLIC [None]
